FAERS Safety Report 5515840-5 (Version None)
Quarter: 2007Q4

REPORT INFORMATION
  Report Type: 
  Country: None (occurrence: None)
  Receive Date: 20071109
  Receipt Date: 20071029
  Transmission Date: 20080405
  Serious: Yes (Other)
  Sender: FDA-Public Use
  Company Number: 2007JP000119

PATIENT
  Age: 58 Year
  Sex: Male
  Weight: 82 kg

DRUGS (13)
  1. TACROLIMUS [Suspect]
     Indication: RHEUMATOID ARTHRITIS
     Dosage: 2 MG, D, ORAL, 3 MG, D, ORAL
     Route: 048
     Dates: start: 20050801, end: 20050822
  2. TACROLIMUS [Suspect]
     Indication: RHEUMATOID ARTHRITIS
     Dosage: 2 MG, D, ORAL, 3 MG, D, ORAL
     Route: 048
     Dates: start: 20050823
  3. PREDNISONE [Concomitant]
  4. RHEUMATREX [Concomitant]
  5. RIMATIL                 (BUCILLAMINE) [Concomitant]
  6. VOLTAREN            SLOW RELEASE CAPSULES [Concomitant]
  7. VOLTAREN [Concomitant]
  8. MUCOSTA                       (REBAMIPIDE) [Concomitant]
  9. LANSOPRAZOLE [Concomitant]
  10. AMARYL [Concomitant]
  11. METFORMIN HYDROCHLORIDE [Concomitant]
  12. BAYLOTENSIN                   (NITRENDIPINE) [Concomitant]
  13. BLOPRESS         (CANDESARTAN CILEXETIL) [Concomitant]

REACTIONS (4)
  - BLOOD GLUCOSE INCREASED [None]
  - CONDITION AGGRAVATED [None]
  - GLUCOSE TOLERANCE IMPAIRED [None]
  - GLYCOSYLATED HAEMOGLOBIN INCREASED [None]
